FAERS Safety Report 18371864 (Version 1)
Quarter: 2020Q4

REPORT INFORMATION
  Report Type: Spontaneous
  Country: US (occurrence: US)
  Receive Date: 20201012
  Receipt Date: 20201012
  Transmission Date: 20210114
  Serious: Yes (Hospitalization, Other)
  Sender: FDA-Public Use
  Company Number: US-VIIV HEALTHCARE LIMITED-US2020GSK197897

PATIENT
  Age: 45 Year
  Sex: Male

DRUGS (7)
  1. DOLUTEGRAVIR [Suspect]
     Active Substance: DOLUTEGRAVIR
     Indication: HIV INFECTION
     Dosage: UNK
     Dates: start: 201706
  2. FLUCONAZOLE. [Suspect]
     Active Substance: FLUCONAZOLE
     Indication: MENINGITIS CRYPTOCOCCAL
     Dosage: UNK
  3. VORICONAZOLE. [Suspect]
     Active Substance: VORICONAZOLE
     Indication: PNEUMONIA CRYPTOCOCCAL
  4. LAMIVUDINE. [Suspect]
     Active Substance: LAMIVUDINE
     Indication: HIV INFECTION
     Dosage: UNK
     Dates: start: 201706
  5. ABACAVIR. [Suspect]
     Active Substance: ABACAVIR
     Indication: HIV INFECTION
     Dosage: UNK
     Dates: start: 201706
  6. VORICONAZOLE. [Suspect]
     Active Substance: VORICONAZOLE
     Indication: MENINGITIS CRYPTOCOCCAL
     Dosage: 450 MG, BID (6 MG/KG)
  7. FLUCONAZOLE. [Suspect]
     Active Substance: FLUCONAZOLE
     Indication: PNEUMONIA CRYPTOCOCCAL

REACTIONS (24)
  - CD4 lymphocytes decreased [Recovered/Resolved]
  - Central nervous system lesion [Unknown]
  - Treatment noncompliance [Unknown]
  - Intracranial pressure increased [Recovered/Resolved]
  - Lung disorder [Unknown]
  - Vomiting [Recovered/Resolved]
  - Meningitis cryptococcal [Recovered/Resolved]
  - Headache [Recovered/Resolved]
  - Emotional distress [Recovered/Resolved]
  - Blood HIV RNA increased [Recovered/Resolved]
  - Dysphagia [Unknown]
  - Virologic failure [Unknown]
  - Pyrexia [Recovered/Resolved]
  - Central nervous system fungal infection [Recovered/Resolved]
  - Treatment failure [Unknown]
  - Cerebral venous thrombosis [Recovered/Resolved]
  - Lymphopenia [Recovered/Resolved]
  - HIV infection [Unknown]
  - Immune reconstitution inflammatory syndrome [Unknown]
  - Superior sagittal sinus thrombosis [Recovered/Resolved]
  - Meningism [Recovered/Resolved]
  - Transaminases increased [Recovered/Resolved]
  - Pneumonia cryptococcal [Recovered/Resolved]
  - Disease recurrence [Recovered/Resolved]

NARRATIVE: CASE EVENT DATE: 201707
